FAERS Safety Report 10908218 (Version 1)
Quarter: 2015Q1

REPORT INFORMATION
  Report Type: Spontaneous
  Country: US (occurrence: US)
  Receive Date: 20150312
  Receipt Date: 20150312
  Transmission Date: 20150721
  Serious: No
  Sender: FDA-Public Use
  Company Number: US-INCYTE CORPORATION-2015IN000677

PATIENT
  Sex: Male

DRUGS (7)
  1. JAKAFI [Suspect]
     Active Substance: RUXOLITINIB
     Indication: MYELOFIBROSIS
     Dosage: 10 MG, BID
     Route: 048
     Dates: start: 201405
  2. HCT [Concomitant]
     Active Substance: HYDROCHLOROTHIAZIDE
  3. VITAMIN D3 [Concomitant]
     Active Substance: CHOLECALCIFEROL
  4. LOSARTAN [Concomitant]
     Active Substance: LOSARTAN
  5. PRILOSEC [Concomitant]
     Active Substance: OMEPRAZOLE MAGNESIUM
  6. RAPAFLO [Concomitant]
     Active Substance: SILODOSIN
  7. SAW PALMETTO                       /00833501/ [Concomitant]
     Active Substance: SAW PALMETTO

REACTIONS (1)
  - Speech disorder [Not Recovered/Not Resolved]
